FAERS Safety Report 16085103 (Version 2)
Quarter: 2021Q2

REPORT INFORMATION
  Report Type: Spontaneous
  Country: US (occurrence: US)
  Receive Date: 20190318
  Receipt Date: 20210607
  Transmission Date: 20210716
  Serious: Yes (Disabling, Other)
  Sender: FDA-Public Use
  Company Number: US-TEVA-2019-US-1024785

PATIENT
  Age: 35 Year
  Sex: Female

DRUGS (20)
  1. SUPER B COMPLEX [Concomitant]
     Active Substance: CYANOCOBALAMIN\DEXPANTHENOL\NIACINAMIDE\PYRIDOXINE HYDROCHLORIDE\RIBOFLAVIN 5^-PHOSPHATE SODIUM\THIAMINE HYDROCHLORIDE\VITAMIN B COMPLEX
     Route: 048
  2. FIORICET [Concomitant]
     Active Substance: ACETAMINOPHEN\BUTALBITAL\CAFFEINE
     Route: 065
  3. CYMBALTA [Concomitant]
     Active Substance: DULOXETINE HYDROCHLORIDE
     Route: 048
     Dates: start: 2006
  4. DOCETAXEL?SAGENT [Suspect]
     Active Substance: DOCETAXEL
     Indication: BREAST CANCER FEMALE
     Dosage: 20 MG/ 1 ML VIAL; NUMBER OF CYCLE ?04, FREQUENCY?EVERY THREE WEEKS
     Route: 042
     Dates: start: 20150618, end: 20150820
  5. AROMASIN [Concomitant]
     Active Substance: EXEMESTANE
     Route: 048
  6. TYLENOL [Concomitant]
     Active Substance: ACETAMINOPHEN
     Dosage: 2 TABLETS; PRN, NOT TO EXCEED 3000 MG/DAY
     Route: 048
  7. CYTOXAN [Suspect]
     Active Substance: CYCLOPHOSPHAMIDE
     Indication: BREAST CANCER FEMALE
     Dosage: 500 MG/ 100 ML; NUMBER OF CYCLE ? 04, FREQUENCY?EVERY THREE WEEKS
     Route: 042
     Dates: start: 20150618, end: 20150820
  8. COPAXONE [Concomitant]
     Active Substance: GLATIRAMER ACETATE
     Indication: MULTIPLE SCLEROSIS
     Dosage: QMONWEDFRI
     Route: 058
     Dates: start: 2013, end: 2018
  9. SEROQUEL [Concomitant]
     Active Substance: QUETIAPINE FUMARATE
     Dosage: EVERY BEDTIME
     Route: 048
  10. GABAPENTIN. [Concomitant]
     Active Substance: GABAPENTIN
     Indication: MOOD SWINGS
     Dosage: 600 MG, 2 TAB, PO, BID
     Route: 048
  11. TYLENOL [Concomitant]
     Active Substance: ACETAMINOPHEN
     Route: 048
  12. IBUPROFEN. [Concomitant]
     Active Substance: IBUPROFEN
     Route: 048
  13. TAMOXIFEN [Concomitant]
     Active Substance: TAMOXIFEN
     Route: 065
     Dates: start: 2010, end: 2017
  14. AMBIEN [Concomitant]
     Active Substance: ZOLPIDEM TARTRATE
     Dosage: AT BEDTIME
     Route: 048
     Dates: start: 2011
  15. EVISTA [Concomitant]
     Active Substance: RALOXIFENE HYDROCHLORIDE
     Route: 065
  16. SOMA [Concomitant]
     Active Substance: CARISOPRODOL
     Route: 065
     Dates: start: 2011, end: 2018
  17. ATIVAN [Concomitant]
     Active Substance: LORAZEPAM
     Route: 065
  18. CYTOXAN [Suspect]
     Active Substance: CYCLOPHOSPHAMIDE
     Dosage: 1 G/ 100 ML; NUMBER OF CYCLE ? 04, FREQUENCY?EVERY THREE WEEKS
     Route: 042
     Dates: start: 20150618, end: 20150820
  19. NEULASTA [Suspect]
     Active Substance: PEGFILGRASTIM
     Route: 065
  20. DOCETAXEL?SAGENT [Suspect]
     Active Substance: DOCETAXEL
     Dosage: 80 MG/ 4 ML VIAL; NUMBER OF CYCLE ?04, FREQUENCY?EVERY THREE WEEKS
     Route: 042
     Dates: start: 20150618, end: 20150820

REACTIONS (16)
  - Headache [Unknown]
  - Madarosis [Not Recovered/Not Resolved]
  - Decreased appetite [Unknown]
  - Hair colour changes [Not Recovered/Not Resolved]
  - Balance disorder [Unknown]
  - Arthralgia [Unknown]
  - Cough [Unknown]
  - Nail disorder [Unknown]
  - Alopecia areata [Not Recovered/Not Resolved]
  - Hot flush [Not Recovered/Not Resolved]
  - Bone pain [Unknown]
  - Aphthous ulcer [Recovering/Resolving]
  - Fatigue [Unknown]
  - Polyneuropathy [Unknown]
  - Hair texture abnormal [Not Recovered/Not Resolved]
  - Paraesthesia [Unknown]

NARRATIVE: CASE EVENT DATE: 2015
